FAERS Safety Report 16215577 (Version 1)
Quarter: 2019Q2

REPORT INFORMATION
  Report Type: Spontaneous
  Country: FR (occurrence: FR)
  Receive Date: 20190419
  Receipt Date: 20190419
  Transmission Date: 20190711
  Serious: Yes (Other)
  Sender: FDA-Public Use
  Company Number: FR-SUN PHARMACEUTICAL INDUSTRIES LTD-2019RR-205751

PATIENT
  Age: 52 Year
  Sex: Male

DRUGS (3)
  1. KETOPROFEN. [Suspect]
     Active Substance: KETOPROFEN
     Indication: TENDON DISORDER
     Dosage: ()
     Route: 048
  2. IBUPROFEN. [Suspect]
     Active Substance: IBUPROFEN
     Indication: TENDON DISORDER
     Dosage: ()
     Route: 048
  3. DICLOFENAC [Suspect]
     Active Substance: DICLOFENAC
     Indication: TENDON DISORDER
     Dosage: ()
     Route: 048

REACTIONS (3)
  - Paraesthesia [Recovered/Resolved]
  - Glossodynia [Recovered/Resolved]
  - Ageusia [Recovered/Resolved]
